FAERS Safety Report 9487088 (Version 1)
Quarter: 2013Q3

REPORT INFORMATION
  Report Type: Spontaneous
  Country: US (occurrence: US)
  Receive Date: 20130829
  Receipt Date: 20130829
  Transmission Date: 20140515
  Serious: Yes (Other)
  Sender: FDA-Public Use
  Company Number: US-TEVA-429032USA

PATIENT
  Age: 76 Year
  Sex: Female

DRUGS (2)
  1. VENLAFAXINE [Suspect]
     Indication: CATAPLEXY
     Dosage: 75 MG/DAY
     Route: 065
  2. FLUOXETINE [Concomitant]
     Indication: CATAPLEXY
     Dosage: 20MG
     Route: 065

REACTIONS (3)
  - Cataplexy [Recovered/Resolved]
  - Hypertension [Recovered/Resolved]
  - Gastroenteritis [Unknown]
